FAERS Safety Report 4380539-8 (Version None)
Quarter: 2004Q2

REPORT INFORMATION
  Report Type: 
  Country: None (occurrence: None)
  Receive Date: 20040618
  Receipt Date: 20040526
  Transmission Date: 20050107
  Serious: Yes (Life-Threatening, Other)
  Sender: FDA-Public Use
  Company Number: US-MERCK-0405USA01995

PATIENT
  Age: 49 Year
  Sex: Female
  Weight: 76 kg

DRUGS (16)
  1. EXTRA STRENGTH TYLENOL [Concomitant]
     Route: 065
  2. VICODIN [Concomitant]
     Route: 048
  3. FOSAMAX [Suspect]
     Indication: OSTEOPOROSIS
     Route: 048
     Dates: start: 20040522, end: 20040522
  4. ASCORBIC ACID [Concomitant]
     Route: 065
  5. ASPIRIN [Concomitant]
     Indication: CORONARY ARTERY DISEASE
     Route: 065
  6. BUSPAR [Concomitant]
     Indication: ANXIETY
     Route: 048
  7. ZYRTEC [Concomitant]
     Route: 048
  8. FLORINEF [Concomitant]
     Indication: IRRITABLE BOWEL SYNDROME
     Route: 048
  9. HUMULIN N [Concomitant]
     Indication: DIABETES MELLITUS INSULIN-DEPENDENT
     Route: 065
  10. HUMALOG [Concomitant]
     Indication: DIABETES MELLITUS INSULIN-DEPENDENT
     Route: 065
  11. CENTRUM [Concomitant]
     Route: 065
  12. POTASSIUM (UNSPECIFIED) [Concomitant]
     Route: 065
  13. ALTACE [Concomitant]
     Route: 048
  14. VITAMIN B COMPLEX [Concomitant]
     Route: 065
  15. VITAMIN E [Concomitant]
     Route: 065
  16. AMBIEN [Concomitant]
     Route: 065

REACTIONS (3)
  - HYPOGLYCAEMIA [None]
  - STOMACH DISCOMFORT [None]
  - VOMITING [None]
